FAERS Safety Report 6583169-2 (Version None)
Quarter: 2010Q1

REPORT INFORMATION
  Report Type: 
  Country: None (occurrence: None)
  Receive Date: 20100216
  Receipt Date: 20100205
  Transmission Date: 20100710
  Serious: Yes (Hospitalization)
  Sender: FDA-Public Use
  Company Number: AR-ROCHE-684711

PATIENT
  Sex: Male
  Weight: 75 kg

DRUGS (2)
  1. BEVACIZUMAB [Suspect]
     Indication: RENAL CANCER
     Dosage: MOST RECENT DOSE: 05 AUG 2009
     Route: 042
     Dates: start: 20090708, end: 20100101
  2. TEMSIROLIMUS [Suspect]
     Indication: RENAL CANCER
     Dosage: FORM: CONCENTRATE FOR SOLUTION FOR INFUSION
     Route: 042
     Dates: start: 20090708

REACTIONS (1)
  - CHOLECYSTITIS [None]
